FAERS Safety Report 5715766-8 (Version None)
Quarter: 2008Q2

REPORT INFORMATION
  Report Type: 
  Country: None (occurrence: None)
  Receive Date: 20080422
  Receipt Date: 20080417
  Transmission Date: 20081010
  Serious: Yes (Hospitalization, Other)
  Sender: FDA-Public Use
  Company Number: ADE2008-0168

PATIENT
  Age: 47 Year
  Sex: Female

DRUGS (2)
  1. ONDANSETRON [Suspect]
     Indication: NAUSEA
     Dosage: 4MG - X 1 - IV
     Route: 042
  2. CYCLOPHOSPHAMIDE [Concomitant]

REACTIONS (8)
  - ARTERIOSPASM CORONARY [None]
  - BLOOD PRESSURE INCREASED [None]
  - EJECTION FRACTION DECREASED [None]
  - ELECTROCARDIOGRAM ST SEGMENT ELEVATION [None]
  - MYOCARDIAL ISCHAEMIA [None]
  - PERICARDIAL EFFUSION [None]
  - TROPONIN I INCREASED [None]
  - VENTRICULAR HYPOKINESIA [None]
